FAERS Safety Report 6150019-8 (Version None)
Quarter: 2009Q2

REPORT INFORMATION
  Report Type: 
  Country: None (occurrence: None)
  Receive Date: 20090409
  Receipt Date: 20090406
  Transmission Date: 20091009
  Serious: Yes (Life-Threatening, Hospitalization, Other)
  Sender: FDA-Public Use
  Company Number: B0568440A

PATIENT
  Age: 85 Year
  Sex: Female

DRUGS (11)
  1. CARVEDILOL [Suspect]
     Indication: CARDIAC FAILURE
     Dosage: 6.25MG PER DAY
     Route: 048
     Dates: start: 20081107
  2. LANTUS [Suspect]
     Dosage: 16IU PER DAY
     Route: 058
     Dates: start: 20000101
  3. NOVOMIX [Suspect]
     Route: 058
     Dates: start: 20000101, end: 20081214
  4. NOVONORM [Suspect]
     Dosage: 2MG THREE TIMES PER DAY
     Route: 048
     Dates: start: 20000101, end: 20081214
  5. ENALAPRIL [Suspect]
     Indication: CARDIAC FAILURE
     Dosage: 2.5MG PER DAY
     Route: 048
     Dates: start: 20081107, end: 20081214
  6. ALLOPURINOL [Concomitant]
     Dates: start: 20081107, end: 20090105
  7. DIGITOXIN TAB [Concomitant]
     Dates: start: 19900101
  8. LEVOTHYROXINE SODIUM [Concomitant]
     Dates: start: 19900101
  9. OMEPRAZOLE [Concomitant]
     Dates: start: 20060101
  10. SPIRONOLACTONE [Concomitant]
     Dates: start: 20081101, end: 20081214
  11. TORASEMIDE [Concomitant]
     Dates: start: 20020101

REACTIONS (12)
  - ALANINE AMINOTRANSFERASE DECREASED [None]
  - BLOOD CREATINE INCREASED [None]
  - BLOOD GLUCOSE DECREASED [None]
  - BLOOD GLUCOSE INCREASED [None]
  - DRUG INTERACTION [None]
  - HAEMATOCRIT INCREASED [None]
  - HAEMOGLOBIN INCREASED [None]
  - HYPOGLYCAEMIA [None]
  - LOSS OF CONSCIOUSNESS [None]
  - PLATELET COUNT DECREASED [None]
  - PNEUMONIA [None]
  - UNRESPONSIVE TO STIMULI [None]
